FAERS Safety Report 6971694-1 (Version None)
Quarter: 2010Q3

REPORT INFORMATION
  Report Type: 
  Country: None (occurrence: None)
  Receive Date: 20100908
  Receipt Date: 20100318
  Transmission Date: 20110219
  Serious: No
  Sender: FDA-Public Use
  Company Number: US-PFIZER INC-2010035977

PATIENT
  Sex: Female

DRUGS (1)
  1. NARDIL [Suspect]
     Indication: DEPRESSION
     Dosage: 15 MG, 3X/DAY
     Route: 048

REACTIONS (2)
  - COUGH [None]
  - NASOPHARYNGITIS [None]
